FAERS Safety Report 25055849 (Version 1)
Quarter: 2025Q1

REPORT INFORMATION
  Report Type: Spontaneous
  Country: IT (occurrence: IT)
  Receive Date: 20250309
  Receipt Date: 20250309
  Transmission Date: 20250409
  Serious: Yes (Other)
  Sender: MACLEODS
  Company Number: IT-MLMSERVICE-20250217-PI416513-00246-1

PATIENT

DRUGS (15)
  1. QUETIAPINE [Suspect]
     Active Substance: QUETIAPINE
     Indication: Psychotic disorder
  2. QUETIAPINE [Suspect]
     Active Substance: QUETIAPINE
     Indication: Delirium
  3. QUETIAPINE [Suspect]
     Active Substance: QUETIAPINE
     Indication: Hallucination, visual
  4. OLANZAPINE [Suspect]
     Active Substance: OLANZAPINE
     Indication: Psychotic disorder
     Route: 065
  5. OLANZAPINE [Suspect]
     Active Substance: OLANZAPINE
     Indication: Delirium
  6. OLANZAPINE [Suspect]
     Active Substance: OLANZAPINE
     Indication: Hallucination, visual
  7. CHLORPROMAZINE [Suspect]
     Active Substance: CHLORPROMAZINE
     Indication: Psychotic disorder
     Route: 065
  8. CHLORPROMAZINE [Suspect]
     Active Substance: CHLORPROMAZINE
     Indication: Delirium
  9. CHLORPROMAZINE [Suspect]
     Active Substance: CHLORPROMAZINE
     Indication: Hallucination, visual
  10. RISPERIDONE [Suspect]
     Active Substance: RISPERIDONE
     Indication: Psychotic disorder
     Route: 065
  11. RISPERIDONE [Suspect]
     Active Substance: RISPERIDONE
     Indication: Delirium
  12. RISPERIDONE [Suspect]
     Active Substance: RISPERIDONE
     Indication: Hallucination, visual
  13. PROMAZINE [Suspect]
     Active Substance: PROMAZINE
     Indication: Psychotic disorder
     Route: 065
  14. PROMAZINE [Suspect]
     Active Substance: PROMAZINE
     Indication: Delirium
  15. PROMAZINE [Suspect]
     Active Substance: PROMAZINE
     Indication: Hallucination, visual

REACTIONS (1)
  - Dystonia [Unknown]
